FAERS Safety Report 8948212 (Version 1)
Quarter: 2012Q4

REPORT INFORMATION
  Report Type: Spontaneous
  Country: CA (occurrence: None)
  Receive Date: 20121127
  Receipt Date: 20121127
  Transmission Date: 20130627
  Serious: Yes (Hospitalization)
  Sender: FDA-Public Use
  Company Number: CA-010065

PATIENT
  Age: 90 Year
  Sex: Male

DRUGS (1)
  1. DEGARELIX [Suspect]
     Indication: PROSTATE CANCER
     Route: 058
     Dates: start: 20120417

REACTIONS (4)
  - Pyrexia [None]
  - Pain [None]
  - Dyspnoea [None]
  - Cardiac failure congestive [None]
